FAERS Safety Report 5065517-8 (Version None)
Quarter: 2006Q3

REPORT INFORMATION
  Report Type: 
  Country: None (occurrence: None)
  Receive Date: 20060731
  Receipt Date: 20060724
  Transmission Date: 20061208
  Serious: Yes (Other)
  Sender: FDA-Public Use
  Company Number: PHFR2006GB02321

PATIENT
  Age: 45 Year
  Sex: Male
  Weight: 95.8 kg

DRUGS (2)
  1. ELIDEL [Suspect]
     Indication: PSORIASIS
     Dosage: UNK, BID
     Route: 061
     Dates: start: 20040601, end: 20040901
  2. ELIDEL [Suspect]
     Dosage: UNK, QD
     Route: 061
     Dates: start: 20040901, end: 20060401

REACTIONS (1)
  - B-CELL LYMPHOMA [None]
